FAERS Safety Report 10150299 (Version 1)
Quarter: 2014Q2

REPORT INFORMATION
  Report Type: Other
  Country: TR (occurrence: TR)
  Receive Date: 20140502
  Receipt Date: 20140502
  Transmission Date: 20141212
  Serious: Yes (Death)
  Sender: FDA-Public Use
  Company Number: TR-BRISTOL-MYERS SQUIBB COMPANY-20669610

PATIENT
  Sex: 0

DRUGS (2)
  1. IFOSFAMIDE [Suspect]
  2. DOXORUBICIN [Suspect]

REACTIONS (1)
  - Tumour lysis syndrome [Fatal]
